FAERS Safety Report 18413626 (Version 2)
Quarter: 2020Q4

REPORT INFORMATION
  Report Type: Spontaneous
  Country: IT (occurrence: IT)
  Receive Date: 20201022
  Receipt Date: 20201230
  Transmission Date: 20210114
  Serious: Yes (Other)
  Sender: FDA-Public Use
  Company Number: IT-TEVA-2020-IT-1839894

PATIENT
  Age: 43 Year
  Sex: Female

DRUGS (3)
  1. DEPAKIN [Concomitant]
     Active Substance: VALPROATE SODIUM
     Indication: PERSONALITY DISORDER
     Dosage: 1500 MG
     Route: 048
  2. QUETIAPINE. [Suspect]
     Active Substance: QUETIAPINE
     Indication: PERSONALITY DISORDER
     Dosage: 800 MG, ABUSE / MISUSE
     Route: 048
     Dates: start: 20181011, end: 20181011
  3. CARBOLITHIUM [Concomitant]
     Active Substance: LITHIUM CARBONATE
     Indication: PERSONALITY DISORDER
     Dosage: 600 MG
     Route: 048

REACTIONS (5)
  - Blood chloride increased [Recovering/Resolving]
  - Speech disorder [Recovering/Resolving]
  - Suicidal ideation [Recovering/Resolving]
  - Sopor [Recovering/Resolving]
  - Drug abuse [Recovering/Resolving]

NARRATIVE: CASE EVENT DATE: 20181011
